FAERS Safety Report 25810962 (Version 2)
Quarter: 2025Q4

REPORT INFORMATION
  Report Type: Spontaneous
  Country: JP (occurrence: JP)
  Receive Date: 20250917
  Receipt Date: 20251019
  Transmission Date: 20260118
  Serious: Yes (Other)
  Sender: JOHNSON AND JOHNSON
  Company Number: JP-JNJFOC-20250924422

PATIENT
  Age: 48 Year

DRUGS (4)
  1. RYBREVANT [Suspect]
     Active Substance: AMIVANTAMAB-VMJW
     Indication: EGFR gene mutation
     Dosage: DOSE UNKNOWN?DAY1
     Route: 041
     Dates: start: 20250828, end: 20250828
  2. RYBREVANT [Suspect]
     Active Substance: AMIVANTAMAB-VMJW
     Dosage: DOSE UNKNOWN?DAY2
     Route: 041
     Dates: start: 20250829, end: 20250829
  3. ALIMTA [Suspect]
     Active Substance: PEMETREXED DISODIUM
     Indication: EGFR gene mutation
     Dosage: DOSE UNKNOWN
     Route: 041
  4. ALIMTA [Suspect]
     Active Substance: PEMETREXED DISODIUM
     Dosage: DOSE UNKNOWN
     Route: 041

REACTIONS (4)
  - Renal impairment [Unknown]
  - Infusion related reaction [Unknown]
  - Diarrhoea [Recovered/Resolved]
  - Neutrophil count decreased [Unknown]

NARRATIVE: CASE EVENT DATE: 20250101
